FAERS Safety Report 8444575-4 (Version None)
Quarter: 2012Q2

REPORT INFORMATION
  Report Type: 
  Country: None (occurrence: None)
  Receive Date: 20120618
  Receipt Date: 20120613
  Transmission Date: 20120825
  Serious: Yes (Death, Life-Threatening)
  Sender: FDA-Public Use
  Company Number: DE-ASTRAZENECA-2012SE39797

PATIENT
  Age: 48 Year
  Sex: Male

DRUGS (15)
  1. RANITIDINE HCL [Concomitant]
     Route: 048
     Dates: start: 20110409
  2. SEROQUEL [Suspect]
     Route: 048
     Dates: start: 20110616
  3. SEROQUEL [Suspect]
     Route: 048
     Dates: start: 20110616
  4. LITHIUM CARBONATE [Concomitant]
     Route: 048
     Dates: start: 20110524
  5. CIATYL [Suspect]
     Route: 048
     Dates: start: 20110603, end: 20110610
  6. CIATYL [Suspect]
     Route: 048
     Dates: start: 20110611, end: 20110615
  7. SIMVASTATIN [Concomitant]
     Route: 048
     Dates: start: 20110409
  8. PLAVIX [Concomitant]
     Route: 048
     Dates: start: 20110409
  9. SEROQUEL [Suspect]
     Route: 048
     Dates: start: 20110409, end: 20110615
  10. CIATYL [Suspect]
     Route: 048
     Dates: start: 20110518, end: 20110602
  11. ASPIRIN [Concomitant]
     Route: 048
     Dates: start: 20110409
  12. PANTOPRAZOLE [Concomitant]
     Route: 048
     Dates: start: 20110409
  13. BISOPROLOL FUMARATE [Concomitant]
     Route: 048
     Dates: start: 20110409
  14. CIATYL [Suspect]
     Route: 048
     Dates: start: 20110616, end: 20110620
  15. SODIUM CHLORIDE [Concomitant]
     Route: 048
     Dates: start: 20110419

REACTIONS (1)
  - COMPLETED SUICIDE [None]
